FAERS Safety Report 18805890 (Version 3)
Quarter: 2021Q1

REPORT INFORMATION
  Report Type: Other
  Country: JP (occurrence: JP)
  Receive Date: 20210129
  Receipt Date: 20210304
  Transmission Date: 20210419
  Serious: Yes (Death)
  Sender: FDA-Public Use
  Company Number: JP-ROCHE-2758623

PATIENT
  Age: 87 Year
  Sex: Female
  Weight: 42 kg

DRUGS (15)
  1. DECADRON [Concomitant]
     Active Substance: DEXAMETHASONE
     Dosage: DOSAGE IS UNCERTAIN.
     Route: 065
     Dates: start: 20201102, end: 20201119
  2. FUROSEMIDE. [Concomitant]
     Active Substance: FUROSEMIDE
     Route: 065
     Dates: start: 20201104, end: 20201119
  3. YOKUKANSAN [Concomitant]
     Active Substance: HERBALS
     Route: 065
     Dates: start: 20201104, end: 20201119
  4. LANSOPRAZOLE. [Concomitant]
     Active Substance: LANSOPRAZOLE
     Route: 065
     Dates: start: 20201104, end: 20201119
  5. VEKLURY [Suspect]
     Active Substance: REMDESIVIR
     Indication: COVID-19
     Route: 042
     Dates: start: 20201114, end: 20201114
  6. ALVESCO [Suspect]
     Active Substance: CICLESONIDE
     Indication: COVID-19
     Dosage: DOSAGE IS UNCERTAIN.
     Route: 065
  7. TOCILIZUMAB. [Suspect]
     Active Substance: TOCILIZUMAB
     Indication: CYTOKINE STORM
     Dosage: MOST RECENT DOSE WAS RECEIVED ON 19/NOV/2020.
     Route: 042
     Dates: start: 202011
  8. TOCILIZUMAB. [Suspect]
     Active Substance: TOCILIZUMAB
     Indication: COVID-19
  9. DEXAMETHASONE ACETATE [Suspect]
     Active Substance: DEXAMETHASONE ACETATE
     Indication: PRODUCT USED FOR UNKNOWN INDICATION
     Dosage: DOSAGE IS UNCERTAIN.
     Route: 042
     Dates: start: 20201102, end: 20201119
  10. ELIQUIS [Suspect]
     Active Substance: APIXABAN
     Indication: COAGULOPATHY
     Dosage: DOSAGE IS UNCERTAIN.
     Route: 042
     Dates: start: 20201102, end: 20201119
  11. BISOPROLOL [Concomitant]
     Active Substance: BISOPROLOL
     Route: 065
     Dates: start: 20201104, end: 20201119
  12. NORADRENALINE [Suspect]
     Active Substance: NOREPINEPHRINE
     Indication: BLOOD PRESSURE DECREASED
     Dosage: DOSAGE IS UNCERTAIN.
     Route: 042
     Dates: start: 20201102, end: 20201119
  13. VEKLURY [Suspect]
     Active Substance: REMDESIVIR
     Route: 042
     Dates: start: 20201115, end: 20201119
  14. SPIRONOLACTONE. [Concomitant]
     Active Substance: SPIRONOLACTONE
     Route: 065
     Dates: start: 20201104, end: 20201119
  15. MEMARY [Concomitant]
     Active Substance: MEMANTINE HYDROCHLORIDE
     Route: 065
     Dates: start: 20201104, end: 20201119

REACTIONS (7)
  - Blood pressure decreased [Fatal]
  - Oxygen saturation decreased [Fatal]
  - Intentional product use issue [Unknown]
  - International normalised ratio increased [Not Recovered/Not Resolved]
  - Acute respiratory distress syndrome [Fatal]
  - Off label use [Unknown]
  - Dehydration [Not Recovered/Not Resolved]

NARRATIVE: CASE EVENT DATE: 202011
